FAERS Safety Report 4659046-0 (Version None)
Quarter: 2005Q2

REPORT INFORMATION
  Report Type: 
  Country: None (occurrence: None)
  Receive Date: 20050502
  Receipt Date: 20050304
  Transmission Date: 20051028
  Serious: No
  Sender: FDA-Public Use
  Company Number: 200511740US

PATIENT
  Age: 43 Year
  Sex: Female

DRUGS (4)
  1. KETEK [Suspect]
     Indication: BRONCHITIS
     Dosage: 800 MG QD PO
     Route: 048
     Dates: start: 20050301
  2. SYNTHROID [Concomitant]
  3. SODIUM CITRATE, DEXTROMETHORPHAN HYDROBROMIDE, AMMONIUM CHLORIDE (CHER [Concomitant]
  4. GUAIFENESIN [Concomitant]

REACTIONS (3)
  - DEHYDRATION [None]
  - DRUG INEFFECTIVE [None]
  - TACHYCARDIA [None]
